FAERS Safety Report 11392555 (Version 3)
Quarter: 2015Q4

REPORT INFORMATION
  Report Type: Spontaneous
  Country: DE (occurrence: DE)
  Receive Date: 20150818
  Receipt Date: 20151103
  Transmission Date: 20160304
  Serious: Yes (Hospitalization, Other)
  Sender: FDA-Public Use
  Company Number: DE-AMGEN-DEUSP2015082584

PATIENT
  Age: 24 Year
  Sex: Male
  Weight: 108 kg

DRUGS (5)
  1. ACICLOVIR [Concomitant]
     Active Substance: ACYCLOVIR
     Indication: STOMATITIS
     Dosage: 500 MG, QD
     Route: 042
     Dates: start: 20150801, end: 20150805
  2. PANTOPRAZOL [Concomitant]
     Active Substance: PANTOPRAZOLE SODIUM
     Indication: PROPHYLAXIS
     Dosage: 40 MG, QD
     Route: 042
     Dates: start: 20150801, end: 20150817
  3. BLINCYTO [Suspect]
     Active Substance: BLINATUMOMAB
     Indication: ACUTE LYMPHOCYTIC LEUKAEMIA RECURRENT
     Dosage: 28 MUG, QD
     Route: 042
     Dates: start: 20150727
  4. LASIX [Concomitant]
     Active Substance: FUROSEMIDE
     Indication: RENAL FAILURE
     Dosage: 250 MG, 24 HRS
     Route: 042
     Dates: start: 20150727, end: 20150817
  5. DEXAMETHASONE. [Concomitant]
     Active Substance: DEXAMETHASONE
     Indication: PROPHYLAXIS
     Dosage: 20 UNK, ONE TIME DOSE
     Route: 042
     Dates: start: 20150727

REACTIONS (4)
  - Respiratory failure [Not Recovered/Not Resolved]
  - Fluid overload [Recovering/Resolving]
  - Azotaemia [Not Recovered/Not Resolved]
  - Neutropenia [Recovered/Resolved]

NARRATIVE: CASE EVENT DATE: 20150812
